FAERS Safety Report 19284060 (Version 1)
Quarter: 2021Q2

REPORT INFORMATION
  Report Type: Spontaneous
  Country: US (occurrence: US)
  Receive Date: 20210521
  Receipt Date: 20210521
  Transmission Date: 20210717
  Serious: No
  Sender: FDA-Public Use
  Company Number: US-BAYER-2021-144865

PATIENT

DRUGS (3)
  1. CLARITIN [Suspect]
     Active Substance: LORATADINE
     Indication: RHINORRHOEA
  2. CLARITIN [Suspect]
     Active Substance: LORATADINE
     Indication: NASAL CONGESTION
     Dosage: 1 DF
  3. CLARITIN [Suspect]
     Active Substance: LORATADINE
     Indication: NASAL PRURITUS

REACTIONS (4)
  - Throat irritation [Unknown]
  - Nasal pruritus [Unknown]
  - Rhinorrhoea [Unknown]
  - Drug ineffective [Unknown]
